FAERS Safety Report 17703361 (Version 1)
Quarter: 2020Q2

REPORT INFORMATION
  Report Type: Report from Study
  Country: None (occurrence: NL)
  Receive Date: 20200423
  Receipt Date: 20200423
  Transmission Date: 20200714
  Serious: Yes (Other)
  Sender: FDA-Public Use
  Company Number: NL-ABBVIE-19S-114-2683523-00

PATIENT
  Sex: Female
  Weight: 58 kg

DRUGS (4)
  1. DUODOPA [Suspect]
     Active Substance: CARBIDOPA\LEVODOPA
     Dosage: MD: 9.0 ML CD: 5.2 ML ED: 4.5 ML. ?NIGHT PUMP: CONTINUOUS DOSE 3.3 ML EXTRA DOSE: 4.5 ML
     Route: 050
     Dates: start: 2019
  2. DUODOPA [Suspect]
     Active Substance: CARBIDOPA\LEVODOPA
     Indication: PARKINSON^S DISEASE
     Dosage: MD: 8.0, CD: 5.2, ED: 4.5, CND: 3.1, END: 4.5?24 HOUR ADMINISTRATION
     Route: 050
     Dates: start: 20190130, end: 2019
  3. DUODOPA [Suspect]
     Active Substance: CARBIDOPA\LEVODOPA
     Dosage: MD: 9.0 ML CD: 4.8 ML ED: 4.5 ML CND: 3.1 ML END: 4.5 ML
     Route: 050
  4. MACROGOL [Concomitant]
     Active Substance: POLYETHYLENE GLYCOLS
     Indication: ABNORMAL FAECES

REACTIONS (20)
  - Fatigue [Recovering/Resolving]
  - Stoma site irritation [Not Recovered/Not Resolved]
  - Unevaluable event [Not Recovered/Not Resolved]
  - Haemoglobin decreased [Recovering/Resolving]
  - Feeling abnormal [Not Recovered/Not Resolved]
  - Asthenia [Not Recovered/Not Resolved]
  - Muscle spasms [Not Recovered/Not Resolved]
  - Hypokinesia [Not Recovered/Not Resolved]
  - Fibroma [Not Recovered/Not Resolved]
  - Weight decreased [Not Recovered/Not Resolved]
  - Therapeutic product effect decreased [Recovered/Resolved]
  - On and off phenomenon [Not Recovered/Not Resolved]
  - Sleep disorder [Recovered/Resolved]
  - Vascular rupture [Recovered/Resolved]
  - Dyschezia [Not Recovered/Not Resolved]
  - Therapeutic product effect incomplete [Recovering/Resolving]
  - Bowel movement irregularity [Unknown]
  - Abnormal dreams [Not Recovered/Not Resolved]
  - General physical health deterioration [Recovered/Resolved]
  - Dyskinesia [Not Recovered/Not Resolved]

NARRATIVE: CASE EVENT DATE: 2019
